FAERS Safety Report 5775171-5 (Version None)
Quarter: 2008Q2

REPORT INFORMATION
  Report Type: 
  Country: None (occurrence: None)
  Receive Date: 20080616
  Receipt Date: 20080616
  Transmission Date: 20081010
  Serious: Yes (Other)
  Sender: FDA-Public Use
  Company Number: None

PATIENT
  Age: 19 Year
  Sex: Male
  Weight: 113.3993 kg

DRUGS (1)
  1. MEDROL [Suspect]
     Indication: BRONCHITIS
     Dosage: FOLLOWED PAK INSTRUCTIONS
     Dates: start: 20080201, end: 20080203

REACTIONS (14)
  - ACTIVITIES OF DAILY LIVING IMPAIRED [None]
  - ARTHRALGIA [None]
  - ASTHENIA [None]
  - CHEST PAIN [None]
  - DRUG HYPERSENSITIVITY [None]
  - DRUG INTERACTION [None]
  - EYE SWELLING [None]
  - FEAR [None]
  - HEADACHE [None]
  - HYPERTENSION [None]
  - MALAISE [None]
  - NECK PAIN [None]
  - PYREXIA [None]
  - SINUSITIS [None]
